FAERS Safety Report 12556925 (Version 2)
Quarter: 2016Q3

REPORT INFORMATION
  Report Type: Other
  Country: FR (occurrence: TW)
  Receive Date: 20160714
  Receipt Date: 20160728
  Transmission Date: 20161109
  Serious: Yes (Death, Hospitalization)
  Sender: FDA-Public Use
  Company Number: TW-FRI-1000086035

PATIENT

DRUGS (1)
  1. MILNACIPRAN [Suspect]
     Active Substance: MILNACIPRAN
     Indication: DEPRESSION
     Dosage: 100 MG
     Route: 065

REACTIONS (3)
  - Ischaemic stroke [Fatal]
  - Death [Fatal]
  - Haemorrhage intracranial [Fatal]
